FAERS Safety Report 23301302 (Version 2)
Quarter: 2023Q4

REPORT INFORMATION
  Report Type: Spontaneous
  Country: IN (occurrence: IN)
  Receive Date: 20231215
  Receipt Date: 20231220
  Transmission Date: 20240110
  Serious: Yes (Death, Life-Threatening, Hospitalization, Other)
  Sender: FDA-Public Use
  Company Number: IN-PFIZER INC-PV202300200178

PATIENT
  Age: 27 Year
  Sex: Female

DRUGS (8)
  1. AZITHROMYCIN [Suspect]
     Active Substance: AZITHROMYCIN
     Indication: Scrub typhus
     Dosage: UNK
     Route: 042
  2. CEFTRIAXONE [Suspect]
     Active Substance: CEFTRIAXONE\CEFTRIAXONE SODIUM
     Indication: Leptospirosis
     Dosage: UNK
     Route: 042
  3. ARTESUNATE [Suspect]
     Active Substance: ARTESUNATE
     Indication: Complicated malaria
     Dosage: UNK
     Route: 042
  4. DOXYCYCLINE [Suspect]
     Active Substance: DOXYCYCLINE
     Indication: Scrub typhus
     Dosage: UNK
  5. PANTOPRAZOLE [Concomitant]
     Active Substance: PANTOPRAZOLE
     Indication: Supportive care
     Dosage: UNK
     Route: 042
  6. MANNITOL [Concomitant]
     Active Substance: MANNITOL
     Indication: Supportive care
     Dosage: UNK
     Route: 042
  7. LEVETIRACETAM [Concomitant]
     Active Substance: LEVETIRACETAM
     Indication: Supportive care
     Dosage: UNK
     Route: 042
  8. LEVETIRACETAM [Concomitant]
     Active Substance: LEVETIRACETAM
     Indication: Epilepsy

REACTIONS (8)
  - Foetal death [Fatal]
  - Acute hepatic failure [Fatal]
  - Shock [Fatal]
  - Multiple organ dysfunction syndrome [Fatal]
  - Hypoxia [Unknown]
  - Disseminated intravascular coagulation [Unknown]
  - Lung infiltration [Unknown]
  - Off label use [Unknown]
